FAERS Safety Report 18590204 (Version 1)
Quarter: 2020Q4

REPORT INFORMATION
  Report Type: Spontaneous
  Country: US (occurrence: US)
  Receive Date: 20201208
  Receipt Date: 20201208
  Transmission Date: 20210114
  Serious: Yes (Hospitalization)
  Sender: FDA-Public Use
  Company Number: US-TAKEDA-2020TUS054938

PATIENT
  Age: 62 Year
  Sex: Male
  Weight: 62.5 kg

DRUGS (4)
  1. GATTEX [Suspect]
     Active Substance: TEDUGLUTIDE\WATER
     Indication: PRODUCT USED FOR UNKNOWN INDICATION
     Dosage: 0.3125 UNITS, QD
     Route: 065
     Dates: start: 20190801
  2. GATTEX [Suspect]
     Active Substance: TEDUGLUTIDE\WATER
     Indication: PRODUCT USED FOR UNKNOWN INDICATION
     Dosage: 0.3125 UNITS, QD
     Route: 065
     Dates: start: 20190801
  3. GATTEX [Suspect]
     Active Substance: TEDUGLUTIDE\WATER
     Indication: PRODUCT USED FOR UNKNOWN INDICATION
     Dosage: 0.3125 UNITS, QD
     Route: 065
     Dates: start: 20190801
  4. GATTEX [Suspect]
     Active Substance: TEDUGLUTIDE\WATER
     Indication: PRODUCT USED FOR UNKNOWN INDICATION
     Dosage: 0.3125 UNITS, QD
     Route: 065
     Dates: start: 20190801

REACTIONS (1)
  - Fistula [Recovering/Resolving]

NARRATIVE: CASE EVENT DATE: 20201102
